FAERS Safety Report 17463838 (Version 1)
Quarter: 2020Q1

REPORT INFORMATION
  Report Type: Spontaneous
  Country: NL (occurrence: NL)
  Receive Date: 20200226
  Receipt Date: 20200226
  Transmission Date: 20200409
  Serious: Yes (Hospitalization, Other)
  Sender: FDA-Public Use
  Company Number: NL-ACCORD-173671

PATIENT
  Age: 10 Year
  Sex: Female
  Weight: 24.7 kg

DRUGS (15)
  1. MYCOPHENOLIC ACID. [Concomitant]
     Active Substance: MYCOPHENOLIC ACID
     Dosage: 3DD1,TABLET (CELLCEPT), 250 MG
  2. SODIUM BICARBONATE. [Concomitant]
     Active Substance: SODIUM BICARBONATE
     Dosage: 3DD1000MG
  3. COLECALCIFEROL [Concomitant]
     Active Substance: CHOLECALCIFEROL
     Dosage: EVERY OTHER DAY 1,800IE
  4. MYCOPHENOLATE MOFETIL/MYCOPHENOLATE SODIUM/MYCOPHENOLIC ACID [Suspect]
     Active Substance: MYCOPHENOLIC ACID
     Indication: IMMUNOSUPPRESSANT DRUG THERAPY
     Dosage: 500 MG,2DD 500 MG
     Dates: start: 20170511, end: 20190501
  5. SULFAMETHOXAZOLE/TRIMETHOPRIM [Suspect]
     Active Substance: SULFAMETHOXAZOLE\TRIMETHOPRIM
     Indication: PROPHYLAXIS AGAINST TRANSPLANT REJECTION
     Dosage: 3X/WEEK 1 TABLET,TABLET 80/400 M
     Dates: start: 20181116, end: 20190501
  6. MACROGOL/MACROGOL STEARATE [Concomitant]
     Active Substance: POLYETHYLENE GLYCOLS
     Dosage: 1DD1 1DD1 ZO REQUIRED?, POWDER V DRINK (FORLAX), 10 G
  7. TACROLIMUS. [Concomitant]
     Active Substance: TACROLIMUS
     Dosage: 2DD2MG,(PROGRAFT), 2 MG
  8. DARBEPOETIN ALFA [Concomitant]
     Active Substance: DARBEPOETIN ALFA
     Dosage: 1X PER WEEK,ALFA INJV WWSP 30MCG  0.3ML (100MCG / ML),
  9. RANITIDINE. [Concomitant]
     Active Substance: RANITIDINE
     Dosage: 1DD1, TABLET 150 MG
  10. PREDNISOLONE. [Concomitant]
     Active Substance: PREDNISOLONE
     Dosage: 1X PER DAY AT 8 HOUR 5 MG ORALLY EN 1X PER DAY AT 20 HOUR 2.5 MG.
  11. AMLODIPINE [Concomitant]
     Active Substance: AMLODIPINE BESYLATE
     Dosage: 2DD7,5MG
  12. OMNITROPE SUREPAL [Concomitant]
     Dosage: 1DD1,SUREPAL INJECTION PEN) INJVLST 10MG / ML PATR 1.5 ML
  13. VALGANCICLOVIR/VALGANCICLOVIR HYDROCHLORIDE [Suspect]
     Active Substance: VALGANCICLOVIR
     Indication: PROPHYLAXIS AGAINST TRANSPLANT REJECTION
     Dosage: 450 MG
     Dates: start: 20181116, end: 20190501
  14. ALFACALCIDOL [Concomitant]
     Active Substance: ALFACALCIDOL
     Dosage: 1DD1,CAPSULE, 0,25 MCG
  15. FERROFUMARAAT [Concomitant]
     Dosage: 1DD1, STRENGTH-200MG

REACTIONS (1)
  - Bone marrow failure [Recovered/Resolved]

NARRATIVE: CASE EVENT DATE: 20190430
